FAERS Safety Report 5578882-X (Version None)
Quarter: 2007Q4

REPORT INFORMATION
  Report Type: 
  Country: None (occurrence: None)
  Receive Date: 20071228
  Receipt Date: 20071219
  Transmission Date: 20080405
  Serious: Yes (Death, Life-Threatening)
  Sender: FDA-Public Use
  Company Number: 20074365

PATIENT
  Sex: Male

DRUGS (2)
  1. LIORESAL [Suspect]
     Indication: MUSCLE SPASTICITY
     Dosage: 100 MCG, DAILY, INTRATHECAL
     Route: 037
  2. (EXCLUDE TREATMENT OF EVENT) [Concomitant]

REACTIONS (6)
  - COMA [None]
  - CYANOSIS [None]
  - FATIGUE [None]
  - INCORRECT DOSE ADMINISTERED [None]
  - LETHARGY [None]
  - RESPIRATORY DEPRESSION [None]
